FAERS Safety Report 15634569 (Version 3)
Quarter: 2019Q1

REPORT INFORMATION
  Report Type: Report from Study
  Country: US (occurrence: US)
  Receive Date: 20181119
  Receipt Date: 20190210
  Transmission Date: 20190417
  Serious: Yes (Hospitalization)
  Sender: FDA-Public Use
  Company Number: PHEH2018US048834

PATIENT
  Age: 44 Year
  Sex: Male
  Weight: 54.93 kg

DRUGS (1)
  1. COSENTYX [Suspect]
     Active Substance: SECUKINUMAB
     Indication: PSORIASIS
     Dosage: 300 MG, QMO
     Route: 058
     Dates: start: 20180228, end: 20180807

REACTIONS (9)
  - Cough [Unknown]
  - Dyspnoea [Unknown]
  - Pneumonia aspiration [Recovered/Resolved]
  - Rales [Unknown]
  - Pneumonia staphylococcal [Recovering/Resolving]
  - Lung abscess [Unknown]
  - Chest discomfort [Unknown]
  - Malaise [Recovering/Resolving]
  - Wheezing [Unknown]

NARRATIVE: CASE EVENT DATE: 20180814
